FAERS Safety Report 9853695 (Version 4)
Quarter: 2014Q1

REPORT INFORMATION
  Report Type: Spontaneous
  Country: US (occurrence: US)
  Receive Date: 20140129
  Receipt Date: 20140228
  Transmission Date: 20141002
  Serious: Yes (Other)
  Sender: FDA-Public Use
  Company Number: US-PFIZER INC-2014025898

PATIENT
  Age: 58 Year
  Sex: Female

DRUGS (38)
  1. LYRICA [Suspect]
     Dosage: 150 MG, QD
     Route: 048
  2. ACIDOPHILUS-B.BIFIDUM-B.LONGUM [Concomitant]
     Dosage: 150 MG, QD
     Route: 048
  3. ALPRAZOLAM [Concomitant]
     Dosage: 2 MG, 3X/DAY
     Route: 048
  4. AMITRIPTYLINE [Concomitant]
     Dosage: 50 MG (3 TABS), 1X/DAY
     Route: 048
  5. ASPIRIN [Concomitant]
     Dosage: 81 MG, EVERY OTHER DAY
     Route: 048
  6. CARISOPRODOL [Concomitant]
     Indication: MUSCLE SPASMS
     Dosage: 350 MG, THREE TIMES DAILY AS NEEDED
     Route: 048
  7. CIPRO ^BAYER^ [Concomitant]
     Dosage: 500 MG, EVERY 12 HOURS
     Route: 048
  8. BENTYL [Concomitant]
     Dosage: 20 MG, 3X/DAY
     Route: 048
  9. DOCUSATE SODIUM [Concomitant]
     Dosage: 100 MG (2CAPS), AT BED TIME
     Route: 048
  10. DOXYCYCLINE HYCLATE [Concomitant]
     Dosage: 100 MG, 2X/DAY
     Route: 048
  11. DELESTROGEN [Concomitant]
     Dosage: 20 MG/ML, EVERY OTHER MONTH (EVERY 2 MONTHS AS DIRECTED)
     Route: 030
  12. ESTRADIOL VALERATE [Concomitant]
     Dosage: 1 ML, EVERY OTHER MONTH
     Route: 030
  13. FENTANYL [Concomitant]
     Dosage: 1 PATCH 72 HR EVERY 3 DAYS
     Route: 062
  14. HYDROCHLOROTHIAZIDE [Concomitant]
     Dosage: 12.5 MG (2 TABS), 1X/DAY
     Route: 048
  15. HYDROXYZINE PAMOATE [Concomitant]
     Indication: PRURITUS
     Dosage: 25 MG, THREE TIMES AS NEEDED
     Route: 048
  16. LEVSIN [Concomitant]
     Indication: ABDOMINAL PAIN
     Dosage: 0.125 MG (1-2 TABS), EVERY 6 HOURS PRN
     Route: 060
  17. PREVACID [Concomitant]
     Dosage: 15 MG, 1X/DAY
     Route: 048
  18. LEVOTHYROXINE [Concomitant]
     Dosage: 75 UG, 1X/DAY (BEFORE BREAKFAST)
     Route: 048
  19. AMITIZA [Concomitant]
     Dosage: 24 UG, QD
     Route: 048
  20. METHYLNALTREXONE [Concomitant]
     Dosage: 12 MG/ 0.6ML, SINGLE (ONE DOSE ONLY)
     Route: 058
  21. METOCLOPRAMIDE HYDROCHLORIDE [Concomitant]
     Dosage: 10 MG, 1X/DAY
     Route: 048
  22. MUPIROCIN [Concomitant]
     Dosage: UNK, APPLY TO AFFECTED AREA TWICE DAILY
     Route: 061
  23. BYSTOLIC [Concomitant]
     Dosage: 5 MG, 1X/DAY
     Route: 048
  24. MACROBID [Concomitant]
     Dosage: 100 MG, 2X/DAY
     Route: 048
  25. NYSTATIN [Concomitant]
     Dosage: 100000 UNK, 4X/DAY
     Route: 048
  26. ONDANSETRON HYDROCHLORIDE [Concomitant]
     Indication: NAUSEA
     Dosage: 4 MG, (1-2 TAB) EVERY 8 HOURS
     Route: 048
  27. ONDANSETRON HYDROCHLORIDE [Concomitant]
     Indication: VOMITING
  28. OPANA [Concomitant]
     Dosage: 10 MG, CAN TAKE UP TO FIVE DAILY
     Route: 048
  29. POTASSIUM CHLORIDE [Concomitant]
     Dosage: 10 MEQ, EVERY OTHER DAY
     Route: 048
  30. KLOR-CON M [Concomitant]
     Dosage: 20 MEQ, 1X/DAY
     Route: 048
  31. MIRAPEX [Concomitant]
     Dosage: 0.25 MG (2 TAB), 2X/DAY
     Route: 048
  32. PRAMIPEXOLE [Concomitant]
     Indication: RESTLESS LEGS SYNDROME
     Dosage: ONE TABLET AT BEDTIME
     Route: 048
  33. PROCHLORPERAZINE MALEATE [Concomitant]
     Indication: NAUSEA
     Dosage: UNK, EVERY 8 HOURS AS NEEDED
     Route: 048
  34. PROCHLORPERAZINE MALEATE [Concomitant]
     Indication: VOMITING
  35. PROMETHAZINE [Concomitant]
     Indication: NAUSEA
     Dosage: 25 MG, EVERY 6 HOURS AS NEEDED
     Route: 048
  36. SILVER SULFADIAZINE [Concomitant]
     Dosage: UNK, 2X/DAY
     Route: 061
  37. SULFAMETHOXAZOLE-TRIMETHOPRIM [Concomitant]
     Dosage: SULFAMETHOXAZOLE 800MG / TRIMETHOPRIM 160MG, 2X/DAY
     Route: 048
  38. ZOLPIDEM [Concomitant]
     Indication: SLEEP DISORDER
     Dosage: 10 MG, AT BEDTIME (PRN) AS NEEDED
     Route: 048

REACTIONS (3)
  - Cerebrovascular accident [Unknown]
  - Impaired driving ability [Unknown]
  - Somnolence [Unknown]
